FAERS Safety Report 20819310 (Version 3)
Quarter: 2022Q2

REPORT INFORMATION
  Report Type: Spontaneous
  Country: TH (occurrence: TH)
  Receive Date: 20220512
  Receipt Date: 20220627
  Transmission Date: 20220721
  Serious: Yes (Death, Other)
  Sender: FDA-Public Use
  Company Number: TH-BoehringerIngelheim-2022-BI-170031

PATIENT
  Age: 91 Year
  Sex: Female

DRUGS (1)
  1. PRAXBIND [Suspect]
     Active Substance: IDARUCIZUMAB
     Indication: Procoagulant therapy
     Route: 065
     Dates: start: 20220423, end: 20220423

REACTIONS (1)
  - Brain neoplasm malignant [Fatal]
